FAERS Safety Report 17455750 (Version 2)
Quarter: 2020Q2

REPORT INFORMATION
  Report Type: Report from Study
  Country: GB (occurrence: GB)
  Receive Date: 20200225
  Receipt Date: 20200416
  Transmission Date: 20200713
  Serious: Yes (Other)
  Sender: FDA-Public Use
  Company Number: NVSC2020GB046766

PATIENT
  Sex: Male

DRUGS (2)
  1. COSENTYX [Suspect]
     Active Substance: SECUKINUMAB
     Indication: PSORIATIC ARTHROPATHY
     Dosage: 300 MG, QMO (LONG TERM USE)
     Route: 058
  2. COSENTYX [Suspect]
     Active Substance: SECUKINUMAB
     Dosage: 150 MG, Q2W
     Route: 058

REACTIONS (6)
  - Malaise [Unknown]
  - Swelling [Not Recovered/Not Resolved]
  - Productive cough [Unknown]
  - Enthesopathy [Recovering/Resolving]
  - Arthralgia [Not Recovered/Not Resolved]
  - Leukaemia [Unknown]
